FAERS Safety Report 21561913 (Version 1)
Quarter: 2022Q4

REPORT INFORMATION
  Report Type: Spontaneous
  Country: AR (occurrence: AR)
  Receive Date: 20221107
  Receipt Date: 20221107
  Transmission Date: 20230112
  Serious: Yes (Other)
  Sender: FDA-Public Use
  Company Number: AR-PFIZER INC-PV202200094753

PATIENT
  Age: 71 Year
  Sex: Female

DRUGS (2)
  1. IBRANCE [Suspect]
     Active Substance: PALBOCICLIB
     Indication: Breast cancer metastatic
     Dosage: 100 MG, DAILY (SCHEME 3X1)
     Dates: start: 20170212
  2. LETROZOLE [Concomitant]
     Active Substance: LETROZOLE
     Dosage: UNK

REACTIONS (5)
  - Deafness [Unknown]
  - White blood cell count decreased [Unknown]
  - Off label use [Unknown]
  - Anaemia [Unknown]
  - Head discomfort [Unknown]

NARRATIVE: CASE EVENT DATE: 20170212
